FAERS Safety Report 13851320 (Version 1)
Quarter: 2017Q3

REPORT INFORMATION
  Report Type: Spontaneous
  Country: DE (occurrence: DE)
  Receive Date: 20170809
  Receipt Date: 20170809
  Transmission Date: 20171127
  Serious: Yes (Life-Threatening, Other)
  Sender: FDA-Public Use
  Company Number: DE-TEVA-2005R071792

PATIENT
  Age: 43 Year
  Sex: Female

DRUGS (10)
  1. CLOPIDOGREL [Interacting]
     Active Substance: CLOPIDOGREL BISULFATE
     Dosage: 75 MILLIGRAM DAILY;
     Route: 048
  2. ABCIXIMAB [Concomitant]
     Active Substance: ABCIXIMAB
     Indication: CORONARY ANGIOPLASTY
     Route: 040
  3. ACETYLSALICYLIC ACID [Concomitant]
     Active Substance: ASPIRIN
     Dosage: 81 MILLIGRAM DAILY;
     Route: 065
  4. HEPARIN STANDARD [Suspect]
     Active Substance: HEPARIN SODIUM
     Dosage: 5000 IU (INTERNATIONAL UNIT) DAILY;
     Route: 040
  5. ACETYLSALICYLIC ACID [Concomitant]
     Active Substance: ASPIRIN
     Indication: MYOCARDIAL INFARCTION
     Dosage: 325 MILLIGRAM DAILY;
     Route: 065
  6. ACETYLSALICYLIC ACID [Concomitant]
     Active Substance: ASPIRIN
     Dosage: 160 MILLIGRAM DAILY;
     Route: 065
  7. SIMVASTATIN. [Interacting]
     Active Substance: SIMVASTATIN
     Indication: PRODUCT USED FOR UNKNOWN INDICATION
     Route: 065
  8. CLOPIDOGREL [Interacting]
     Active Substance: CLOPIDOGREL BISULFATE
     Indication: PRODUCT USED FOR UNKNOWN INDICATION
     Dosage: 300 MILLIGRAM DAILY;
     Route: 048
  9. HEPARIN STANDARD [Suspect]
     Active Substance: HEPARIN SODIUM
     Indication: MYOCARDIAL INFARCTION
     Dosage: 9000 IU (INTERNATIONAL UNIT) DAILY;
     Route: 040
  10. HEPARIN STANDARD [Suspect]
     Active Substance: HEPARIN SODIUM
     Dosage: 15000 MILLIGRAM DAILY;
     Route: 058

REACTIONS (4)
  - Cardiac ventricular thrombosis [Unknown]
  - Drug interaction [Unknown]
  - Heparin-induced thrombocytopenia [Unknown]
  - Thrombotic stroke [Unknown]
